FAERS Safety Report 24206525 (Version 1)
Quarter: 2024Q3

REPORT INFORMATION
  Report Type: Spontaneous
  Country: US (occurrence: US)
  Receive Date: 20240813
  Receipt Date: 20240813
  Transmission Date: 20241017
  Serious: Yes (Hospitalization)
  Sender: BOEHRINGER INGELHEIM
  Company Number: US-BoehringerIngelheim-2024-BI-044742

PATIENT
  Sex: Female

DRUGS (1)
  1. SPIRIVA RESPIMAT [Suspect]
     Active Substance: TIOTROPIUM BROMIDE
     Indication: Product used for unknown indication
     Route: 055
     Dates: start: 202404

REACTIONS (9)
  - Atrioventricular block [Not Recovered/Not Resolved]
  - Heart rate increased [Unknown]
  - Spinal fracture [Unknown]
  - Blood glucose abnormal [Unknown]
  - Bladder wall calcification [Unknown]
  - Fatigue [Unknown]
  - Hyperhidrosis [Unknown]
  - Muscle spasms [Unknown]
  - Nausea [Unknown]
